FAERS Safety Report 24047570 (Version 1)
Quarter: 2024Q3

REPORT INFORMATION
  Report Type: Spontaneous
  Country: IN (occurrence: IN)
  Receive Date: 20240703
  Receipt Date: 20240703
  Transmission Date: 20241016
  Serious: Yes (Other)
  Sender: ELI LILLY AND CO
  Company Number: IN-ELI_LILLY_AND_COMPANY-IN202406018420

PATIENT
  Sex: Female

DRUGS (2)
  1. IXEKIZUMAB [Suspect]
     Active Substance: IXEKIZUMAB
     Indication: Psoriasis
     Dosage: 160 MG, OTHER (LOADING DOSE)
     Route: 065
  2. IXEKIZUMAB [Suspect]
     Active Substance: IXEKIZUMAB
     Dosage: UNK UNK, UNKNOWN
     Route: 065

REACTIONS (1)
  - Aggression [Recovering/Resolving]
